FAERS Safety Report 4963961-8 (Version None)
Quarter: 2006Q1

REPORT INFORMATION
  Report Type: 
  Country: None (occurrence: None)
  Receive Date: 20060330
  Receipt Date: 20060321
  Transmission Date: 20060701
  Serious: Yes (Other)
  Sender: FDA-Public Use
  Company Number: 200602973

PATIENT
  Age: 32 Year
  Sex: Male

DRUGS (1)
  1. BOTOX [Suspect]
     Indication: MUSCLE SPASTICITY

REACTIONS (4)
  - CONDITION AGGRAVATED [None]
  - MUSCLE SPASTICITY [None]
  - MYELITIS TRANSVERSE [None]
  - SPINAL CORD INJURY [None]
